FAERS Safety Report 6095593-5 (Version None)
Quarter: 2009Q1

REPORT INFORMATION
  Report Type: 
  Country: None (occurrence: None)
  Receive Date: 20090227
  Receipt Date: 20080428
  Transmission Date: 20090719
  Serious: No
  Sender: FDA-Public Use
  Company Number: A0725882A

PATIENT
  Sex: Female

DRUGS (2)
  1. LAMICTAL [Suspect]
     Indication: BIPOLAR DISORDER
     Dosage: 100MGD PER DAY
     Route: 048
  2. UNKNOWN [Concomitant]

REACTIONS (4)
  - ELEVATED MOOD [None]
  - ENERGY INCREASED [None]
  - THERAPEUTIC RESPONSE UNEXPECTED [None]
  - WEIGHT DECREASED [None]
